FAERS Safety Report 7717341-2 (Version None)
Quarter: 2011Q3

REPORT INFORMATION
  Report Type: 
  Country: None (occurrence: None)
  Receive Date: 20110823
  Receipt Date: 20100824
  Transmission Date: 20111222
  Serious: Yes (Hospitalization)
  Sender: FDA-Public Use
  Company Number: 2010026349

PATIENT
  Sex: Male

DRUGS (1)
  1. ZEMAIRA [Suspect]
     Dosage: (INTRAVENOUS (NOT OTHERWISE SPECIFIED)
     Route: 042
     Dates: start: 20100517, end: 20100517

REACTIONS (5)
  - RESPIRATORY RATE DECREASED [None]
  - PALLOR [None]
  - ANAPHYLACTIC REACTION [None]
  - DYSPNOEA [None]
  - PHARYNGEAL OEDEMA [None]
